FAERS Safety Report 19182864 (Version 1)
Quarter: 2021Q2

REPORT INFORMATION
  Report Type: Other
  Country: ES (occurrence: ES)
  Receive Date: 20210426
  Receipt Date: 20210426
  Transmission Date: 20210717
  Serious: No
  Sender: FDA-Public Use
  Company Number: ES-ROCHE-2814522

PATIENT

DRUGS (3)
  1. RITUXIMAB. [Suspect]
     Active Substance: RITUXIMAB
     Indication: MULTIPLE SCLEROSIS
     Route: 042
  2. OCRELIZUMAB. [Suspect]
     Active Substance: OCRELIZUMAB
     Indication: MULTIPLE SCLEROSIS
     Route: 065
  3. NATALIZUMAB [Suspect]
     Active Substance: NATALIZUMAB
     Indication: MULTIPLE SCLEROSIS
     Route: 065

REACTIONS (2)
  - COVID-19 [Unknown]
  - Infusion related reaction [Unknown]
